FAERS Safety Report 7683325-6 (Version None)
Quarter: 2011Q3

REPORT INFORMATION
  Report Type: 
  Country: None (occurrence: None)
  Receive Date: 20110815
  Receipt Date: 20110803
  Transmission Date: 20111222
  Serious: Yes (Death)
  Sender: FDA-Public Use
  Company Number: JP-BAYER-201011780BYL

PATIENT
  Age: 90 Year
  Sex: Male
  Weight: 63.7 kg

DRUGS (3)
  1. NEXAVAR [Suspect]
     Indication: HEPATIC NEOPLASM MALIGNANT
     Dosage: 800 MG, UNK
     Route: 048
     Dates: start: 20100329, end: 20100408
  2. LEVOFLOXACIN [Concomitant]
     Indication: CONJUNCTIVITIS
     Route: 031
     Dates: start: 20100403
  3. MAGMITT [Concomitant]
     Dosage: 750 MG (DAILY DOSE), , ORAL
     Route: 048
     Dates: start: 20100317, end: 20100408

REACTIONS (1)
  - AORTIC ANEURYSM RUPTURE [None]
